FAERS Safety Report 15007590 (Version 3)
Quarter: 2018Q3

REPORT INFORMATION
  Report Type: Spontaneous
  Country: DE (occurrence: DE)
  Receive Date: 20180613
  Receipt Date: 20180821
  Transmission Date: 20181010
  Serious: Yes (Death, Life-Threatening, Hospitalization, Other)
  Sender: FDA-Public Use
  Company Number: DE-JNJFOC-20180610414

PATIENT
  Age: 69 Year
  Sex: Male

DRUGS (7)
  1. DARZALEX [Suspect]
     Active Substance: DARATUMUMAB
     Indication: PLASMACYTOMA
     Route: 042
     Dates: start: 20180424, end: 20180523
  2. ACICLOVIR [Concomitant]
     Active Substance: ACYCLOVIR
  3. DEXAMETHASONE. [Suspect]
     Active Substance: DEXAMETHASONE
     Indication: PLASMACYTOMA
     Route: 048
     Dates: start: 201804, end: 20180523
  4. COTRIMOXAZOLE [Concomitant]
     Active Substance: SULFAMETHOXAZOLE\TRIMETHOPRIM
  5. LENALIDOMIDE [Suspect]
     Active Substance: LENALIDOMIDE
     Indication: PLASMACYTOMA
     Route: 048
     Dates: start: 201804, end: 20180523
  6. ALLO [Concomitant]
     Active Substance: ALLOPURINOL
  7. PANTOPRAZOL [Concomitant]
     Active Substance: PANTOPRAZOLE SODIUM

REACTIONS (18)
  - Necrosis [Unknown]
  - Leukopenia [Unknown]
  - Rib fracture [Unknown]
  - Pulmonary congestion [Unknown]
  - Thrombocytopenia [Unknown]
  - Escherichia sepsis [Fatal]
  - Disseminated intravascular coagulation [Unknown]
  - Acute respiratory failure [Unknown]
  - Aplastic anaemia [Unknown]
  - Septic encephalopathy [Unknown]
  - General physical health deterioration [Unknown]
  - Superior vena cava syndrome [Unknown]
  - Electrolyte imbalance [Unknown]
  - Lactic acidosis [Unknown]
  - Hypotension [Unknown]
  - Fracture [Unknown]
  - Multiple organ dysfunction syndrome [Not Recovered/Not Resolved]
  - Peripheral ischaemia [Unknown]

NARRATIVE: CASE EVENT DATE: 201805
